FAERS Safety Report 9434369 (Version 2)
Quarter: 2014Q1

REPORT INFORMATION
  Report Type: Report from Study
  Country: CA (occurrence: CA)
  Receive Date: 20130801
  Receipt Date: 20140115
  Transmission Date: 20141002
  Serious: Yes (Other)
  Sender: FDA-Public Use
  Company Number: CA-JNJFOC-20130717052

PATIENT
  Age: 36 Year
  Sex: Female
  Weight: 55.8 kg

DRUGS (3)
  1. REMICADE [Suspect]
     Indication: COLITIS ULCERATIVE
     Route: 042
     Dates: start: 20120222
  2. ATIVAN [Concomitant]
     Route: 065
  3. CELEXA [Concomitant]
     Route: 065

REACTIONS (3)
  - Nervous system neoplasm [Unknown]
  - Dehydration [Unknown]
  - Colitis ulcerative [Unknown]
